FAERS Safety Report 8696550 (Version 4)
Quarter: 2012Q4

REPORT INFORMATION
  Report Type: Report from Study
  Country: CA (occurrence: CA)
  Receive Date: 20120801
  Receipt Date: 20120924
  Transmission Date: 20130627
  Serious: Yes (Death)
  Sender: FDA-Public Use
  Company Number: CA-BRISTOL-MYERS SQUIBB COMPANY-16813586

PATIENT
  Age: 56 Year
  Sex: Male

DRUGS (8)
  1. IPILIMUMAB [Suspect]
     Indication: MALIGNANT MELANOMA
     Dosage: no. of courses:3
     Route: 042
     Dates: start: 20120531, end: 20120710
  2. WARFARIN [Concomitant]
     Indication: ATRIAL FIBRILLATION
     Dosage: interr 20Jul
restart 23Jul-2.5mg
     Route: 048
  3. METOPROLOL [Concomitant]
     Indication: ATRIAL FIBRILLATION
     Dosage: 50mg,BID.23Jul12
  4. BABY ASPIRIN [Concomitant]
  5. MULTIVITAMIN [Concomitant]
     Dosage: 1 DF: 1 tablet
  6. ADVIL [Concomitant]
     Dosage: every 4 hours
  7. TYLENOL #2 [Concomitant]
     Dosage: 1 DF: 1-2 tablets, every 6 hrs.
     Dates: end: 20120723
  8. SALBUTAMOL [Concomitant]
     Dosage: 100mcg/DS,Q4H,PRN.

REACTIONS (1)
  - Malignant neoplasm progression [Fatal]
